FAERS Safety Report 25733600 (Version 1)
Quarter: 2025Q3

REPORT INFORMATION
  Report Type: Spontaneous
  Country: GB (occurrence: GB)
  Receive Date: 20250828
  Receipt Date: 20250828
  Transmission Date: 20251020
  Serious: Yes (Other)
  Sender: STRIDES
  Company Number: None

PATIENT
  Age: 28 Year
  Sex: Female

DRUGS (1)
  1. GABAPENTIN [Suspect]
     Active Substance: GABAPENTIN
     Indication: Pain in jaw
     Route: 065
     Dates: start: 20250614

REACTIONS (1)
  - Polymenorrhoea [Not Recovered/Not Resolved]

NARRATIVE: CASE EVENT DATE: 20250701
